FAERS Safety Report 5017087-8 (Version None)
Quarter: 2006Q2

REPORT INFORMATION
  Report Type: 
  Country: None (occurrence: None)
  Receive Date: 20060525
  Receipt Date: 20060516
  Transmission Date: 20061013
  Serious: Yes (Other)
  Sender: FDA-Public Use
  Company Number: US-2006-009706

PATIENT
  Age: 33 Year
  Sex: Female
  Weight: 54 kg

DRUGS (1)
  1. MIRENA [Suspect]
     Indication: CONTRACEPTION
     Dosage: 20 UG/DAY, CONT, INTRA-UTERINE
     Route: 015
     Dates: start: 20060202, end: 20060317

REACTIONS (5)
  - BENIGN HYDATIDIFORM MOLE [None]
  - DRUG EXPOSURE BEFORE PREGNANCY [None]
  - IUCD COMPLICATION [None]
  - PELVIC PAIN [None]
  - PREGNANCY WITH CONTRACEPTIVE DEVICE [None]
